FAERS Safety Report 15470616 (Version 1)
Quarter: 2018Q4

REPORT INFORMATION
  Report Type: Spontaneous
  Country: US (occurrence: US)
  Receive Date: 20181005
  Receipt Date: 20181005
  Transmission Date: 20190205
  Serious: No
  Sender: FDA-Public Use
  Company Number: US-PFIZER INC-2018396061

PATIENT
  Age: 15 Year
  Sex: Male

DRUGS (1)
  1. GENOTROPIN [Suspect]
     Active Substance: SOMATROPIN
     Dosage: 2 MG, DAILY
     Dates: start: 20180508

REACTIONS (10)
  - Blood phosphorus increased [Unknown]
  - White blood cell count decreased [Unknown]
  - Haemoglobin decreased [Unknown]
  - Lymphocyte count decreased [Unknown]
  - Blood bilirubin increased [Unknown]
  - Blood potassium decreased [Unknown]
  - Globulins decreased [Unknown]
  - Thyroxine increased [Unknown]
  - Blood testosterone decreased [Unknown]
  - Haematocrit decreased [Unknown]
